FAERS Safety Report 23592105 (Version 1)
Quarter: 2024Q1

REPORT INFORMATION
  Report Type: Spontaneous
  Country: PT (occurrence: PT)
  Receive Date: 20240304
  Receipt Date: 20240304
  Transmission Date: 20240409
  Serious: Yes (Hospitalization, Other)
  Sender: FDA-Public Use
  Company Number: PT-ELI_LILLY_AND_COMPANY-PT202402012909

PATIENT
  Age: 66 Year
  Sex: Male

DRUGS (4)
  1. RETEVMO [Suspect]
     Active Substance: SELPERCATINIB
     Indication: Product used for unknown indication
     Dosage: 80 MG, BID (2 CAPSULES)
     Route: 065
     Dates: start: 20230719
  2. RETEVMO [Suspect]
     Active Substance: SELPERCATINIB
     Dosage: 120 MG, BID
     Route: 065
     Dates: start: 202308
  3. CANAGLIFLOZIN [Suspect]
     Active Substance: CANAGLIFLOZIN
     Indication: Product used for unknown indication
     Dosage: UNK UNK, UNKNOWN
     Route: 065
  4. AMLODIPINE [Concomitant]
     Active Substance: AMLODIPINE BESYLATE
     Indication: Product used for unknown indication

REACTIONS (6)
  - Chronic kidney disease [Unknown]
  - Cardiac dysfunction [Unknown]
  - Aspartate aminotransferase increased [Unknown]
  - Alanine aminotransferase increased [Unknown]
  - Polyuria [Unknown]
  - Dehydration [Unknown]
